FAERS Safety Report 10721184 (Version 1)
Quarter: 2015Q1

REPORT INFORMATION
  Report Type: Spontaneous
  Country: US (occurrence: US)
  Receive Date: 20150119
  Receipt Date: 20150119
  Transmission Date: 20150721
  Serious: No
  Sender: FDA-Public Use
  Company Number: US-UNITED THERAPEUTICS-UNT-2014-008464

PATIENT
  Sex: Female
  Weight: 82.54 kg

DRUGS (2)
  1. REMODULIN [Suspect]
     Active Substance: TREPROSTINIL
     Indication: PULMONARY ARTERIAL HYPERTENSION
     Dosage: 0.03702 ?G/KG/MIN, CONTINUING
     Route: 058
     Dates: start: 20140922
  2. ADCIRCA [Concomitant]
     Active Substance: TADALAFIL
     Indication: PRODUCT USED FOR UNKNOWN INDICATION

REACTIONS (8)
  - Infusion site erythema [Unknown]
  - Drug dose omission [Unknown]
  - Injection site discharge [Unknown]
  - Diarrhoea [Unknown]
  - Infusion site pain [Unknown]
  - Infusion site haemorrhage [Unknown]
  - Device dislocation [Unknown]
  - Infusion site bruising [Unknown]

NARRATIVE: CASE EVENT DATE: 2014
